FAERS Safety Report 8304187-X (Version None)
Quarter: 2012Q2

REPORT INFORMATION
  Report Type: 
  Country: None (occurrence: None)
  Receive Date: 20120423
  Receipt Date: 20120419
  Transmission Date: 20120825
  Serious: Yes (Other)
  Sender: FDA-Public Use
  Company Number: JP-SANOFI-AVENTIS-2012SA027434

PATIENT
  Age: 73 Year
  Sex: Male

DRUGS (6)
  1. LEUCOVORIN CALCIUM [Concomitant]
     Dates: start: 20120312, end: 20120312
  2. OXALIPLATIN [Suspect]
     Indication: COLON CANCER
     Route: 041
  3. LEUCOVORIN CALCIUM [Concomitant]
  4. FLUOROURACIL [Concomitant]
     Route: 040
  5. OXALIPLATIN [Suspect]
     Route: 041
     Dates: start: 20120312, end: 20120312
  6. FLUOROURACIL [Concomitant]
     Route: 042

REACTIONS (1)
  - SHOCK [None]
